FAERS Safety Report 7348757-4 (Version None)
Quarter: 2011Q1

REPORT INFORMATION
  Report Type: 
  Country: None (occurrence: None)
  Receive Date: 20110314
  Receipt Date: 20110303
  Transmission Date: 20110831
  Serious: No
  Sender: FDA-Public Use
  Company Number: US-BIOGENIDEC-2011BI008549

PATIENT
  Age: 29 Year
  Sex: Female

DRUGS (1)
  1. AVONEX [Suspect]
     Indication: MULTIPLE SCLEROSIS
     Route: 030
     Dates: start: 20110302

REACTIONS (5)
  - HEADACHE [None]
  - NAUSEA [None]
  - ABDOMINAL PAIN UPPER [None]
  - HYPERSOMNIA [None]
  - INSOMNIA [None]
